FAERS Safety Report 8436166-6 (Version None)
Quarter: 2012Q2

REPORT INFORMATION
  Report Type: 
  Country: None (occurrence: None)
  Receive Date: 20120614
  Receipt Date: 20120608
  Transmission Date: 20120825
  Serious: Yes (Death)
  Sender: FDA-Public Use
  Company Number: AT-PFIZER INC-2012139390

PATIENT
  Age: 72 Year
  Sex: Male
  Weight: 187 kg

DRUGS (1)
  1. AXITINIB [Suspect]
     Indication: METASTATIC RENAL CELL CARCINOMA
     Dosage: 5 MG, 2X/DAY
     Route: 048
     Dates: start: 20120101

REACTIONS (2)
  - SEPSIS [None]
  - RENAL FAILURE ACUTE [None]
